FAERS Safety Report 17591131 (Version 1)
Quarter: 2020Q1

REPORT INFORMATION
  Report Type: Spontaneous
  Country: US (occurrence: US)
  Receive Date: 20200327
  Receipt Date: 20200327
  Transmission Date: 20200409
  Serious: No
  Sender: FDA-Public Use
  Company Number: US-PFIZER INC-2020128450

PATIENT
  Age: 80 Year
  Sex: Female
  Weight: 83.9 kg

DRUGS (1)
  1. IBRANCE [Suspect]
     Active Substance: PALBOCICLIB
     Indication: BREAST CANCER FEMALE
     Dosage: 125 MG, 1 DAILY FOR 21 DAYS
     Route: 048
     Dates: start: 20200220

REACTIONS (4)
  - Skin lesion [Unknown]
  - Lymphoedema [Unknown]
  - Rash [Unknown]
  - Epistaxis [Unknown]
